FAERS Safety Report 9461824 (Version 1)
Quarter: 2013Q3

REPORT INFORMATION
  Report Type: Spontaneous
  Country: CN (occurrence: CN)
  Receive Date: 20130816
  Receipt Date: 20130816
  Transmission Date: 20140515
  Serious: Yes (Other)
  Sender: FDA-Public Use
  Company Number: CN-PFIZER INC-2013233738

PATIENT
  Age: 92 Year
  Sex: Female
  Weight: 45 kg

DRUGS (2)
  1. CELEBREX [Suspect]
     Indication: BONE PAIN
     Dosage: 1 CAPSULE, ONCE DAILY
     Route: 048
     Dates: start: 20120515, end: 20120609
  2. CELEBREX [Suspect]
     Indication: OSTEOPOROSIS

REACTIONS (1)
  - Granulocytopenia [Recovering/Resolving]
